FAERS Safety Report 18966611 (Version 1)
Quarter: 2021Q1

REPORT INFORMATION
  Report Type: Spontaneous
  Country: US (occurrence: US)
  Receive Date: 20210304
  Receipt Date: 20210304
  Transmission Date: 20210420
  Serious: No
  Sender: FDA-Public Use
  Company Number: US-AMGEN-USASP2021024136

PATIENT
  Age: 66 Year
  Sex: Female

DRUGS (1)
  1. NEULASTA [Suspect]
     Active Substance: PEGFILGRASTIM
     Indication: NEUTROPENIA
     Dosage: UNK UNK, AFTER CHEMO
     Route: 065

REACTIONS (6)
  - Weight increased [Unknown]
  - Dyspnoea [Unknown]
  - Night sweats [Unknown]
  - Peripheral swelling [Unknown]
  - Swelling face [Unknown]
  - Hot flush [Unknown]

NARRATIVE: CASE EVENT DATE: 202101
